FAERS Safety Report 20028828 (Version 1)
Quarter: 2021Q4

REPORT INFORMATION
  Report Type: Report from Study
  Country: CN (occurrence: None)
  Receive Date: 20211103
  Receipt Date: 20211103
  Transmission Date: 20220303
  Serious: Yes (Other)
  Sender: FDA-Public Use
  Company Number: 2021A790028

PATIENT

DRUGS (1)
  1. DAPAGLIFLOZIN [Suspect]
     Active Substance: DAPAGLIFLOZIN
     Route: 048

REACTIONS (9)
  - Fournier^s gangrene [Unknown]
  - Renal tubular necrosis [Unknown]
  - Pancreatitis acute [Unknown]
  - Muscular dystrophy [Unknown]
  - Bladder outlet obstruction [Unknown]
  - Hyperkalaemia [Unknown]
  - Non-alcoholic steatohepatitis [Unknown]
  - Diabetic ketoacidosis [Unknown]
  - Urinary tract infection [Unknown]
